FAERS Safety Report 10848706 (Version 1)
Quarter: 2015Q1

REPORT INFORMATION
  Report Type: Spontaneous
  Country: US (occurrence: US)
  Receive Date: 20150220
  Receipt Date: 20150220
  Transmission Date: 20150721
  Serious: Yes (Hospitalization)
  Sender: FDA-Public Use
  Company Number: US-CELGENEUS-163-21880-14011220

PATIENT
  Age: 75 Year
  Sex: Female
  Weight: 72.6 kg

DRUGS (1)
  1. REVLIMID [Suspect]
     Active Substance: LENALIDOMIDE
     Indication: PLASMA CELL MYELOMA
     Dosage: 10 MILLIGRAM
     Route: 048
     Dates: start: 201311

REACTIONS (6)
  - Bronchitis [Unknown]
  - Fatigue [Unknown]
  - Pneumonia [Unknown]
  - Dizziness [Unknown]
  - H1N1 influenza [Unknown]
  - Drug dose omission [Unknown]

NARRATIVE: CASE EVENT DATE: 201312
